FAERS Safety Report 10129345 (Version 2)
Quarter: 2014Q2

REPORT INFORMATION
  Report Type: Spontaneous
  Country: US (occurrence: US)
  Receive Date: 20140428
  Receipt Date: 20140606
  Transmission Date: 20141212
  Serious: Yes (Other)
  Sender: FDA-Public Use
  Company Number: US-BEH-2014041938

PATIENT
  Age: 8 Year
  Sex: Male
  Weight: 23.8 kg

DRUGS (2)
  1. PRIVIGEN [Suspect]
     Indication: AUTOIMMUNE DISORDER
     Dosage: ALSO SPORADIC TREATMENT; 1 G/KG
     Route: 042
     Dates: start: 20140212, end: 20140212
  2. PRIVIGEN [Suspect]
     Indication: ENCEPHALOPATHY
     Dosage: ALSO SPORADIC TREATMENT; 1 G/KG
     Route: 042
     Dates: start: 20140212, end: 20140212

REACTIONS (2)
  - Angioedema [Unknown]
  - Chest pain [Unknown]
